FAERS Safety Report 4378349-0 (Version None)
Quarter: 2004Q2

REPORT INFORMATION
  Report Type: 
  Country: None (occurrence: None)
  Receive Date: 20040609
  Receipt Date: 20040528
  Transmission Date: 20050107
  Serious: Yes (Hospitalization)
  Sender: FDA-Public Use
  Company Number: US-JNJFOC-20040600233

PATIENT
  Age: 64 Year
  Sex: Female

DRUGS (7)
  1. ACETAMINOPHEN [Suspect]
     Indication: PAIN IN EXTREMITY
     Dosage: ORAL (SEE IMAGE)
     Route: 048
     Dates: start: 20040101, end: 20040501
  2. ACETAMINOPHEN [Suspect]
     Indication: PAIN IN EXTREMITY
     Dosage: ORAL (SEE IMAGE)
     Route: 048
     Dates: start: 20040301
  3. ACETAMINOPHEN [Suspect]
     Indication: PAIN IN EXTREMITY
     Dosage: ORAL (SEE IMAGE)
     Route: 048
     Dates: start: 20040501
  4. DILANTIN [Concomitant]
  5. TEGRETOL [Concomitant]
  6. MYSOLINE [Concomitant]
  7. SLEEPING PILL (OTHER HYPNOTICS AND SEDATIVES) [Concomitant]

REACTIONS (4)
  - ASTHENIA [None]
  - EATING DISORDER [None]
  - HYPOVITAMINOSIS [None]
  - OVERDOSE [None]
